FAERS Safety Report 6651795-8 (Version None)
Quarter: 2010Q1

REPORT INFORMATION
  Report Type: 
  Country: None (occurrence: None)
  Receive Date: 20100325
  Receipt Date: 20100308
  Transmission Date: 20100710
  Serious: Yes (Hospitalization)
  Sender: FDA-Public Use
  Company Number: FR-ALLERGAN-1003727US

PATIENT
  Age: 82 Year
  Sex: Male

DRUGS (6)
  1. TROSPIUM CHLORIDE [Suspect]
     Indication: DRUG USE FOR UNKNOWN INDICATION
     Dosage: 20 MG, QD
     Route: 048
     Dates: end: 20071101
  2. DIGOXIN [Suspect]
     Indication: ATRIAL FIBRILLATION
     Dosage: UNK
     Route: 048
     Dates: end: 20071101
  3. STILNOX [Suspect]
     Indication: DRUG USE FOR UNKNOWN INDICATION
     Dosage: UNK
     Route: 048
  4. IRBESARTAN [Concomitant]
  5. PREVISCAN [Concomitant]
  6. LERCAN [Concomitant]
     Dosage: UNK
     Dates: end: 20071101

REACTIONS (3)
  - BRADYCARDIA [None]
  - CONFUSIONAL STATE [None]
  - HALLUCINATION [None]
